FAERS Safety Report 9650739 (Version 2)
Quarter: 2016Q2

REPORT INFORMATION
  Report Type: Spontaneous
  Country: US (occurrence: US)
  Receive Date: 20131029
  Receipt Date: 20160415
  Transmission Date: 20160815
  Serious: No
  Sender: FDA-Public Use
  Company Number: US-009507513-1310USA011723

PATIENT
  Age: 11 Year
  Sex: Male
  Weight: 52 kg

DRUGS (7)
  1. THIAMINE. [Suspect]
     Active Substance: THIAMINE
     Indication: POISONING
  2. RISPERIDONE. [Suspect]
     Active Substance: RISPERIDONE
     Indication: POISONING
  3. QUETIAPINE FUMARATE. [Suspect]
     Active Substance: QUETIAPINE FUMARATE
     Indication: POISONING
  4. OMEPRAZOLE. [Suspect]
     Active Substance: OMEPRAZOLE
     Indication: POISONING
     Route: 048
  5. SIMVASTATIN TABLETS, USP [Suspect]
     Active Substance: SIMVASTATIN
     Indication: POISONING
     Route: 048
  6. BENZTROPINE MESYLATE. [Suspect]
     Active Substance: BENZTROPINE MESYLATE
     Indication: POISONING
     Route: 048
  7. FOLIC ACID. [Suspect]
     Active Substance: FOLIC ACID
     Indication: POISONING

REACTIONS (8)
  - Sinus tachycardia [Recovered/Resolved]
  - Confusional state [Recovered/Resolved]
  - Delirium [Recovered/Resolved]
  - Mucosal dryness [Recovered/Resolved]
  - Anhidrosis [Recovered/Resolved]
  - Mydriasis [Recovered/Resolved]
  - Intentional product misuse [Unknown]
  - Agitation [Recovered/Resolved]
